FAERS Safety Report 17236568 (Version 1)
Quarter: 2019Q4

REPORT INFORMATION
  Report Type: Spontaneous
  Country: US (occurrence: US)
  Receive Date: 20191211
  Receipt Date: 20191211
  Transmission Date: 20200122
  Serious: Yes (Hospitalization)
  Sender: FDA-Public Use
  Company Number: None

PATIENT
  Age: 64 Year
  Sex: Male

DRUGS (9)
  1. ADVIL [Concomitant]
     Active Substance: IBUPROFEN
  2. TYLENOL 8HR [Concomitant]
     Active Substance: ACETAMINOPHEN
  3. HUMIRA [Suspect]
     Active Substance: ADALIMUMAB
     Indication: CROHN^S DISEASE
     Route: 058
     Dates: start: 20170830
  4. VITAMIN D3 [Concomitant]
     Active Substance: CHOLECALCIFEROL
  5. AMLODIPINE [Concomitant]
     Active Substance: AMLODIPINE BESYLATE
  6. DOXAZOSIN [Concomitant]
     Active Substance: DOXAZOSIN MESYLATE
  7. LANSOPRAZOLE. [Concomitant]
     Active Substance: LANSOPRAZOLE
  8. SLO=NIACIN [Concomitant]
  9. ASPIRIN 81 [Concomitant]
     Active Substance: ASPIRIN

REACTIONS (1)
  - Surgery [None]

NARRATIVE: CASE EVENT DATE: 201903
